FAERS Safety Report 11804186 (Version 3)
Quarter: 2016Q4

REPORT INFORMATION
  Report Type: Report from Study
  Country: US (occurrence: US)
  Receive Date: 20151204
  Receipt Date: 20161214
  Transmission Date: 20170206
  Serious: Yes (Other)
  Sender: FDA-Public Use
  Company Number: US-JNJFOC-20151200017

PATIENT
  Sex: Female

DRUGS (14)
  1. VITAMIN B COMPLEX [Concomitant]
     Active Substance: CYANOCOBALAMIN\DEXPANTHENOL\NIACINAMIDE\PYRIDOXINE HYDROCHLORIDE\RIBOFLAVIN 5^-PHOSPHATE SODIUM\THIAMINE HYDROCHLORIDE\VITAMIN B COMPLEX
  2. FLUTICASONE PROPIONATE. [Concomitant]
     Active Substance: FLUTICASONE PROPIONATE
  3. VENTOLIN HFA [Concomitant]
     Active Substance: ALBUTEROL SULFATE
  4. VITAMINE A [Concomitant]
     Active Substance: RETINOL
  5. TOPIRAMATE. [Concomitant]
     Active Substance: TOPIRAMATE
  6. DELSYM [Concomitant]
     Active Substance: DEXTROMETHORPHAN
  7. METOPROLOL. [Concomitant]
     Active Substance: METOPROLOL
  8. MUCINEX DM [Concomitant]
     Active Substance: DEXTROMETHORPHAN HYDROBROMIDE\GUAIFENESIN
  9. CITALOPRAM [Concomitant]
     Active Substance: CITALOPRAM HYDROBROMIDE
  10. PROMETHAZINE [Concomitant]
     Active Substance: PROMETHAZINE\PROMETHAZINE HYDROCHLORIDE
  11. BUPROPION. [Concomitant]
     Active Substance: BUPROPION
  12. CYCLOBENZAPRINE [Concomitant]
     Active Substance: CYCLOBENZAPRINE
  13. IMBRUVICA [Suspect]
     Active Substance: IBRUTINIB
     Indication: CHRONIC LYMPHOCYTIC LEUKAEMIA
     Route: 048
     Dates: start: 20150416
  14. ALLEGRA-D [Concomitant]
     Active Substance: FEXOFENADINE\PSEUDOEPHEDRINE

REACTIONS (4)
  - Ear infection fungal [Not Recovered/Not Resolved]
  - Urinary tract infection [Unknown]
  - Dizziness [Unknown]
  - Ear haemorrhage [Unknown]

NARRATIVE: CASE EVENT DATE: 2015
